FAERS Safety Report 9604637 (Version 2)
Quarter: 2013Q4

REPORT INFORMATION
  Report Type: Spontaneous
  Country: SE (occurrence: SE)
  Receive Date: 20131008
  Receipt Date: 20131030
  Transmission Date: 20140711
  Serious: Yes (Hospitalization)
  Sender: FDA-Public Use
  Company Number: SE-MALLINCKRODT-T201304482

PATIENT
  Age: 75 Year
  Sex: Female

DRUGS (9)
  1. OPTIRAY 350 [Suspect]
     Indication: COMPUTERISED TOMOGRAM THORAX
     Dosage: UNK UNK, SINGLE
     Route: 042
     Dates: start: 20130609, end: 20130609
  2. ESOMEPRAZOL                        /01479301/ [Concomitant]
     Dosage: 20 MG, 1X1
  3. WARFARIN [Concomitant]
     Dosage: 2.5 MG, 1/2 TAB DAILY
  4. EMCONCOR [Concomitant]
     Dosage: 2, 5 MG,  1X1
  5. XELODA [Concomitant]
     Dosage: 150 MG, 2 + 2
     Dates: start: 2013
  6. XELODA [Concomitant]
     Dosage: 500 MG, 1+1
  7. BONDRONAT                          /01304701/ [Concomitant]
     Dosage: 50 MG, 1X1
  8. PRIMPERAN [Concomitant]
     Dosage: 10 MG, 1 PRN
  9. ALVEDON [Concomitant]
     Dosage: 500 MG, 1.2, PRN

REACTIONS (1)
  - Respiratory disorder [Recovered/Resolved]
